FAERS Safety Report 12497293 (Version 1)
Quarter: 2016Q2

REPORT INFORMATION
  Report Type: Spontaneous
  Country: US (occurrence: US)
  Receive Date: 20160624
  Receipt Date: 20160624
  Transmission Date: 20160815
  Serious: No
  Sender: FDA-Public Use
  Company Number: US-BAYER-2016-123632

PATIENT
  Age: 60 Year
  Sex: Female
  Weight: 102.4 kg

DRUGS (7)
  1. CLARITIN REDITABS [Suspect]
     Active Substance: LORATADINE
     Indication: THROAT IRRITATION
  2. CLARITIN REDITABS [Suspect]
     Active Substance: LORATADINE
     Indication: LACRIMATION INCREASED
  3. CELEBREX [Concomitant]
     Active Substance: CELECOXIB
     Dosage: UNK
  4. CLARITIN REDITABS [Suspect]
     Active Substance: LORATADINE
     Indication: RHINORRHOEA
  5. CLARITIN REDITABS [Suspect]
     Active Substance: LORATADINE
     Indication: UPPER-AIRWAY COUGH SYNDROME
     Dosage: 1 DF, QD
     Route: 048
     Dates: start: 20160615
  6. OMEGA 3 FISH OIL [Concomitant]
     Active Substance: FISH OIL\OMEGA-3 FATTY ACIDS
     Dosage: UNK
  7. CLARITIN REDITABS [Suspect]
     Active Substance: LORATADINE
     Indication: COUGH

REACTIONS (1)
  - Drug ineffective [None]

NARRATIVE: CASE EVENT DATE: 20160615
